FAERS Safety Report 8802927 (Version 2)
Quarter: 2012Q4

REPORT INFORMATION
  Report Type: 
  Country: US (occurrence: US)
  Receive Date: 20120924
  Receipt Date: 20121009
  Transmission Date: 20130627
  Serious: Yes (Other)
  Sender: FDA-Public Use
  Company Number: US-PFIZER INC-2012231605

PATIENT
  Age: 49 Year

DRUGS (1)
  1. VIAGRA [Suspect]
     Dosage: 100, 1 tab, PRN

REACTIONS (5)
  - Prostate cancer [Unknown]
  - Back pain [Unknown]
  - Asthenia [Unknown]
  - Fatigue [Unknown]
  - Activities of daily living impaired [Unknown]
